FAERS Safety Report 7500374-9 (Version None)
Quarter: 2011Q2

REPORT INFORMATION
  Report Type: 
  Country: None (occurrence: None)
  Receive Date: 20110524
  Receipt Date: 20110513
  Transmission Date: 20111010
  Serious: Yes (Hospitalization)
  Sender: FDA-Public Use
  Company Number: US-BAYER-2011-043972

PATIENT
  Age: 25 Year
  Sex: Female
  Weight: 54.422 kg

DRUGS (6)
  1. LOESTRIN 1.5/30 [Concomitant]
     Dosage: UNK
     Dates: start: 20090101
  2. YASMIN [Suspect]
     Indication: CONTRACEPTION
     Dosage: UNK
     Dates: start: 20040601, end: 20080101
  3. DROSPIRENONE AND ETHINYL ESTRADIOL [Suspect]
     Indication: CONTRACEPTION
     Dosage: UNK
     Dates: start: 20080701, end: 20091101
  4. ALLEGRA [Concomitant]
  5. IBUPROFEN [Concomitant]
     Dosage: UNK
     Dates: start: 19950101
  6. ALBUTEROL SULFATE AUTOHALER [Concomitant]
     Indication: ASTHMA
     Dosage: UNK UNK, PRN

REACTIONS (6)
  - RECTAL FISSURE [None]
  - CHOLECYSTITIS CHRONIC [None]
  - POST PROCEDURAL DIARRHOEA [None]
  - PROCEDURAL VOMITING [None]
  - CHOLELITHIASIS [None]
  - PROCEDURAL PAIN [None]
